FAERS Safety Report 10362402 (Version 1)
Quarter: 2014Q1

REPORT INFORMATION
  Report Type: Spontaneous
  Country: US (occurrence: None)
  Receive Date: 20140306
  Receipt Date: 20140306
  Transmission Date: 20141002
  Serious: Yes (Hospitalization, Other)
  Sender: FDA-Public Use
  Company Number: 163-21880-13061141

PATIENT
  Age: 75 Year
  Sex: Male
  Weight: 95.71 kg

DRUGS (14)
  1. REVLIMID [Suspect]
     Indication: MYELODYSPLASTIC SYNDROME
     Route: 048
     Dates: start: 20110427
  2. PACKED RED BLOOD CELLS (RED BLOOD CELLS CONCENTRATED) (INJECTION FOR INFUSION) [Concomitant]
  3. COUMADIN (WARFARIN SODIUM) (UNKNOWN) [Concomitant]
  4. FLUTICASONE PROPIONATE (UNKNOWN) [Concomitant]
  5. ALIGN (BIFIDOBACTERIUM INFANTIS) (UNKNOWN) [Concomitant]
  6. VITAMIN B12 (CYANOCOBALAMIN) (UNKNOWN) [Concomitant]
  7. VITAMIN D3 (COLECALCIFEROL) (UNKNOWN) [Concomitant]
  8. POTASSIUM (UNKNOWN) [Concomitant]
  9. PAXIL (PAROXETINE HYDROCHLORIDE) (UNKNOWN) [Concomitant]
  10. LEVOTHYROXINE (UNKNOWN) [Concomitant]
  11. MULTIVITAMIN (MULTIVITAMINS) (TABLETS) [Concomitant]
  12. ARANESP (DARBEPOETIN ALFA) (UNKNOWN) [Concomitant]
  13. LOVENOX (HEPARIN-FRACTION, SODIUM SALT) (INJECTION) [Concomitant]
  14. PROTONIX (UNKNOWN) [Concomitant]

REACTIONS (7)
  - International normalised ratio fluctuation [None]
  - Erectile dysfunction [None]
  - Neutropenia [None]
  - Bone marrow failure [None]
  - Pneumonia [None]
  - Dry skin [None]
  - Neuropathy peripheral [None]
